FAERS Safety Report 7078383-6 (Version None)
Quarter: 2010Q4

REPORT INFORMATION
  Report Type: 
  Country: None (occurrence: None)
  Receive Date: 20101101
  Receipt Date: 20101101
  Transmission Date: 20110411
  Serious: Yes (Hospitalization, Other)
  Sender: FDA-Public Use
  Company Number: None

PATIENT
  Age: 54 Year
  Sex: Female
  Weight: 54.4316 kg

DRUGS (1)
  1. KENALOG [Suspect]
     Indication: KELOID SCAR
     Dosage: EVERY MONTH ID
     Route: 023
     Dates: start: 20101005, end: 20101005

REACTIONS (5)
  - CRYING [None]
  - FATIGUE [None]
  - HORMONE LEVEL ABNORMAL [None]
  - TACHYCARDIA [None]
  - TREMOR [None]
